FAERS Safety Report 18576206 (Version 3)
Quarter: 2021Q3

REPORT INFORMATION
  Report Type: Spontaneous
  Country: IT (occurrence: IT)
  Receive Date: 20201203
  Receipt Date: 20210929
  Transmission Date: 20211014
  Serious: Yes (Hospitalization, Other)
  Sender: FDA-Public Use
  Company Number: IT-MYLANLABS-2020M1098417

PATIENT
  Age: 67 Year
  Sex: Male

DRUGS (15)
  1. METYRAPONE [Suspect]
     Active Substance: METYRAPONE
     Dosage: UNK
     Dates: start: 202001
  2. LEVETIRACETAM. [Suspect]
     Active Substance: LEVETIRACETAM
     Indication: COVID-19
     Dosage: UNK UNK, UNKNOWN
     Route: 065
  3. AZITHROMYCIN ANHYDROUS. [Suspect]
     Active Substance: AZITHROMYCIN ANHYDROUS
     Indication: COVID-19 PNEUMONIA
     Dosage: UNK
  4. HYDROXYCHLOROQUINE [Suspect]
     Active Substance: HYDROXYCHLOROQUINE
     Indication: COVID-19 PNEUMONIA
     Dosage: UNK, 11DAYS
     Route: 065
  5. PASIREOTIDE. [Interacting]
     Active Substance: PASIREOTIDE
     Dosage: 40 MILLIGRAM, MONTHLY
     Route: 058
  6. METYRAPONE [Suspect]
     Active Substance: METYRAPONE
     Indication: PITUITARY-DEPENDENT CUSHING^S SYNDROME
     Dosage: 500 MG, QD (1/DAY)
     Route: 065
     Dates: end: 2019
  7. CEFTRIAXONE. [Suspect]
     Active Substance: CEFTRIAXONE
     Indication: COVID-19 PNEUMONIA
     Dosage: UNK, 12 DAYS
     Route: 065
  8. SITAGLIPTIN [Suspect]
     Active Substance: SITAGLIPTIN
     Indication: DIABETES MELLITUS
     Dosage: 50 MG, QD (1/DAY)
     Route: 065
     Dates: start: 201806
  9. CABERGOLINE. [Suspect]
     Active Substance: CABERGOLINE
     Indication: CUSHING^S SYNDROME
     Dosage: 0.5 MG, QD (1/DAY)
     Route: 065
  10. METFORMIN [Concomitant]
     Active Substance: METFORMIN HYDROCHLORIDE
     Indication: DIABETES MELLITUS
     Dosage: UNK
     Route: 065
     Dates: start: 201806
  11. ASPIRIN                            /00002701/ [Suspect]
     Active Substance: ASPIRIN
     Indication: PRODUCT USED FOR UNKNOWN INDICATION
     Dosage: UNK
  12. VITAMIN D                          /00107901/ [Concomitant]
     Active Substance: ERGOCALCIFEROL
     Indication: PRODUCT USED FOR UNKNOWN INDICATION
     Dosage: UNK
  13. AZITHROMYCIN ANHYDROUS. [Suspect]
     Active Substance: AZITHROMYCIN ANHYDROUS
     Dosage: UNK
  14. L?THYROXINE                        /00068001/ [Suspect]
     Active Substance: LEVOTHYROXINE
     Indication: HYPOPITUITARISM
     Dosage: 100 ?G, QD (1/DAY)
     Route: 065
  15. PASIREOTIDE. [Interacting]
     Active Substance: PASIREOTIDE
     Indication: PITUITARY-DEPENDENT CUSHING^S SYNDROME
     Dosage: 40 MILLIGRAM, QM
     Route: 030

REACTIONS (10)
  - Hypoglycaemia [Recovered/Resolved]
  - Adrenal insufficiency [Unknown]
  - COVID-19 [Recovered/Resolved]
  - Hyperkalaemia [Unknown]
  - Off label use [Unknown]
  - Product use in unapproved indication [Unknown]
  - Deep vein thrombosis [Unknown]
  - Product use issue [Unknown]
  - Drug interaction [Unknown]
  - Hypotension [Recovered/Resolved]

NARRATIVE: CASE EVENT DATE: 202002
